FAERS Safety Report 4476462-0 (Version None)
Quarter: 2004Q4

REPORT INFORMATION
  Report Type: 
  Country: None (occurrence: None)
  Receive Date: 20041012
  Receipt Date: 20040928
  Transmission Date: 20050328
  Serious: Yes (Hospitalization, Other)
  Sender: FDA-Public Use
  Company Number: 209070

PATIENT
  Age: 42 Year
  Sex: Female
  Weight: 83.6 kg

DRUGS (10)
  1. RITUXAN [Suspect]
     Indication: B-CELL LYMPHOMA
     Dosage: 731 MG,  INTRAVENOUS
     Route: 042
     Dates: start: 20040722
  2. GEMCITABINE (GEMCITABINE HYDROCHLORIDE) [Suspect]
     Indication: NON-HODGKIN'S LYMPHOMA
     Dosage: 1950 MG
     Dates: start: 20040722
  3. OXALIPLATIN [Suspect]
     Indication: NON-HODGKIN'S LYMPHOMA
     Dates: start: 20040722
  4. NEULASTA [Suspect]
     Indication: NON-HODGKIN'S LYMPHOMA
  5. COZAAR [Concomitant]
  6. SYNTHROID [Concomitant]
  7. OXYCONTIN [Concomitant]
  8. TIGAN [Concomitant]
  9. ACETAMINOPHEN [Concomitant]
  10. DIPHENHYDRAMINE (DIPHENHYDRAMINE NOS) [Concomitant]

REACTIONS (6)
  - ACUTE LYMPHOCYTIC LEUKAEMIA [None]
  - COUGH [None]
  - NON-HODGKIN'S LYMPHOMA [None]
  - PANCYTOPENIA [None]
  - PNEUMONIA [None]
  - PYREXIA [None]
